FAERS Safety Report 16099840 (Version 1)
Quarter: 2019Q1

REPORT INFORMATION
  Report Type: Spontaneous
  Country: IT (occurrence: IT)
  Receive Date: 20190321
  Receipt Date: 20190321
  Transmission Date: 20190418
  Serious: Yes (Hospitalization)
  Sender: FDA-Public Use
  Company Number: IT-BAYER-200611972GDS

PATIENT
  Age: 88 Year
  Sex: Female

DRUGS (3)
  1. ASPIRINETTA [Interacting]
     Active Substance: ASPIRIN
     Indication: ISCHAEMIC HEART DISEASE PROPHYLAXIS
  2. BREXIN [PIROXICAM BETADEX] [Interacting]
     Active Substance: PIROXICAM BETADEX
     Indication: PAIN
     Dosage: 20 MG, QD
     Route: 048
     Dates: start: 20060305, end: 20060310
  3. ASPIRINETTA [Suspect]
     Active Substance: ASPIRIN
     Indication: CORONARY ARTERY DISEASE
     Dosage: 100 MG, QD
     Route: 048
     Dates: start: 20060101, end: 20060313

REACTIONS (4)
  - Melaena [Recovered/Resolved]
  - Duodenitis [Recovered/Resolved]
  - Oesophagitis [Recovered/Resolved]
  - Gastritis erosive [Recovered/Resolved]

NARRATIVE: CASE EVENT DATE: 20060310
